FAERS Safety Report 25014130 (Version 1)
Quarter: 2025Q1

REPORT INFORMATION
  Report Type: Other
  Country: MA (occurrence: MA)
  Receive Date: 20250226
  Receipt Date: 20250226
  Transmission Date: 20250408
  Serious: Yes (Other)
  Sender: Apozeal Pharmaceuticals
  Company Number: MA-Apozeal Pharmaceuticals-2171827

PATIENT
  Age: 12 Year

DRUGS (1)
  1. RISPERIDONE [Suspect]
     Active Substance: RISPERIDONE
     Indication: Schizophrenia

REACTIONS (2)
  - Neuroleptic malignant syndrome [Unknown]
  - Product use issue [Unknown]
